FAERS Safety Report 21766894 (Version 1)
Quarter: 2022Q4

REPORT INFORMATION
  Report Type: Spontaneous
  Country: FR (occurrence: FR)
  Receive Date: 20221222
  Receipt Date: 20221222
  Transmission Date: 20230112
  Serious: Yes (Other)
  Sender: FDA-Public Use
  Company Number: FR-TEVA-2022-FR-2838290

PATIENT
  Age: 73 Year
  Sex: Female

DRUGS (3)
  1. QUETIAPINE [Suspect]
     Active Substance: QUETIAPINE
     Indication: Bipolar disorder
     Dosage: 250 MILLIGRAM DAILY;
     Route: 065
  2. QUETIAPINE [Suspect]
     Active Substance: QUETIAPINE
     Dosage: 400 MILLIGRAM DAILY;
     Route: 065
  3. OXAZEPAM [Concomitant]
     Active Substance: OXAZEPAM
     Indication: Bipolar disorder
     Route: 065

REACTIONS (1)
  - Hypersexuality [Recovered/Resolved]
